FAERS Safety Report 4332974-1 (Version None)
Quarter: 2004Q2

REPORT INFORMATION
  Report Type: 
  Country: None (occurrence: None)
  Receive Date: 20040406
  Receipt Date: 20020904
  Transmission Date: 20050107
  Serious: Yes (Hospitalization, Other)
  Sender: FDA-Public Use
  Company Number: US-MERCK-0209USA00352

PATIENT
  Age: 58 Year
  Sex: Female
  Weight: 77 kg

DRUGS (9)
  1. SYNTHROID [Concomitant]
     Indication: HYPOTHYROIDISM
     Route: 065
  2. METHOTREXATE [Concomitant]
     Route: 065
     Dates: start: 19940101
  3. VIOXX [Suspect]
     Indication: PAIN IN EXTREMITY
     Route: 048
     Dates: start: 20010830, end: 20010901
  4. ARMOUR THYROID TABLETS [Concomitant]
     Route: 065
  5. TRAZODONE HYDROCHLORIDE [Concomitant]
     Indication: INSOMNIA
     Route: 065
  6. PREMARIN [Concomitant]
     Indication: HORMONE REPLACEMENT THERAPY
     Route: 065
  7. ESTRATAB [Concomitant]
     Route: 065
  8. MENEST [Concomitant]
     Route: 065
  9. GARLIC EXTRACT [Concomitant]
     Indication: HYPERCHOLESTEROLAEMIA
     Route: 065

REACTIONS (25)
  - ABASIA [None]
  - ANXIETY [None]
  - ARTHRALGIA [None]
  - ARTHROPATHY [None]
  - ATRIAL FIBRILLATION [None]
  - CARDIAC ANEURYSM [None]
  - CORNEAL DEPOSITS [None]
  - DIZZINESS [None]
  - DYSPNOEA [None]
  - EMBOLISM [None]
  - FIBROSIS [None]
  - HAEMATOMA [None]
  - HAEMATURIA [None]
  - HYPERTENSION [None]
  - HYPERTENSIVE CRISIS [None]
  - MENISCUS LESION [None]
  - MUSCULOSKELETAL DISORDER [None]
  - NEUROMA [None]
  - NUCLEAR MAGNETIC RESONANCE IMAGING ABNORMAL [None]
  - OEDEMA PERIPHERAL [None]
  - PULSE WAVEFORM ABNORMAL [None]
  - REFUSAL OF TREATMENT BY PATIENT [None]
  - RENAL CYST [None]
  - RESIDUAL URINE VOLUME [None]
  - TRANSIENT ISCHAEMIC ATTACK [None]
